FAERS Safety Report 7812142-9 (Version None)
Quarter: 2011Q4

REPORT INFORMATION
  Report Type: 
  Country: None (occurrence: None)
  Receive Date: 20111013
  Receipt Date: 20111006
  Transmission Date: 20120403
  Serious: Yes (Other)
  Sender: FDA-Public Use
  Company Number: US-ELI_LILLY_AND_COMPANY-US201110002419

PATIENT
  Age: 48 Year
  Sex: Female

DRUGS (5)
  1. EFFIENT [Suspect]
     Indication: MYOCARDIAL INFARCTION
     Dosage: 60 MG, LOADING DOSE ONLY
     Dates: start: 20110923
  2. PLAVIX [Concomitant]
     Dosage: 600 MG, LOADING DOSE
     Dates: start: 20110923
  3. HEPARIN [Concomitant]
     Dosage: 4000 UNITS, UNKNOWN
     Dates: start: 20110923
  4. INTEGRILIN [Concomitant]
     Dosage: UNK, UNKNOWN
     Dates: start: 20110923
  5. PLAVIX [Concomitant]
     Dosage: UNK, MAINTENANCE DOSE

REACTIONS (2)
  - HELICOBACTER INFECTION [None]
  - HAEMATEMESIS [None]
